FAERS Safety Report 17276204 (Version 1)
Quarter: 2020Q1

REPORT INFORMATION
  Report Type: Spontaneous
  Country: US (occurrence: US)
  Receive Date: 20200116
  Receipt Date: 20200116
  Transmission Date: 20200409
  Serious: Yes (Hospitalization, Other)
  Sender: FDA-Public Use
  Company Number: US-ASTRAZENECA-2020SE06165

PATIENT
  Sex: Male
  Weight: 9.2 kg

DRUGS (1)
  1. SYNAGIS [Suspect]
     Active Substance: PALIVIZUMAB
     Indication: FALLOT^S TETRALOGY
     Dosage: 100MG/1ML
     Route: 030

REACTIONS (1)
  - Anaphylactic shock [Unknown]
